FAERS Safety Report 7046361-9 (Version None)
Quarter: 2010Q4

REPORT INFORMATION
  Report Type: 
  Country: None (occurrence: None)
  Receive Date: 20101014
  Receipt Date: 20101007
  Transmission Date: 20110411
  Serious: Yes (Other)
  Sender: FDA-Public Use
  Company Number: JP-PFIZER INC-2010123178

PATIENT
  Age: 84 Year
  Sex: Female

DRUGS (3)
  1. NORVASC [Suspect]
     Dosage: 2.5 MG DAILY
     Route: 048
  2. GASTER [Suspect]
  3. PLAVIX [Suspect]
     Dosage: 25 MG, DAILY

REACTIONS (1)
  - ATRIOVENTRICULAR BLOCK [None]
